FAERS Safety Report 8925300 (Version 1)
Quarter: 2012Q4

REPORT INFORMATION
  Report Type: Spontaneous
  Country: US (occurrence: None)
  Receive Date: 20121116
  Receipt Date: 20121116
  Transmission Date: 20130627
  Serious: Yes (Other)
  Sender: FDA-Public Use
  Company Number: MIN-00890

PATIENT
  Age: 22 Year
  Sex: Male

DRUGS (1)
  1. MINOCYCLINE [Suspect]

REACTIONS (7)
  - Polyarteritis nodosa [None]
  - Myalgia [None]
  - Arthralgia [None]
  - Rash [None]
  - Epididymitis [None]
  - Antineutrophil cytoplasmic antibody positive [None]
  - Vasculitis necrotising [None]
